FAERS Safety Report 8481507-7 (Version None)
Quarter: 2012Q3

REPORT INFORMATION
  Report Type: 
  Country: None (occurrence: None)
  Receive Date: 20120702
  Receipt Date: 20120626
  Transmission Date: 20120928
  Serious: Yes (Death, Life-Threatening)
  Sender: FDA-Public Use
  Company Number: DE-JNJFOC-20120613073

PATIENT
  Age: 7 Decade
  Sex: Male

DRUGS (2)
  1. REOPRO [Suspect]
     Indication: MYOCARDIAL INFARCTION
     Route: 042
     Dates: start: 20120623, end: 20120623
  2. REOPRO [Suspect]
     Indication: ACUTE CORONARY SYNDROME
     Route: 042
     Dates: start: 20120623, end: 20120623

REACTIONS (2)
  - PULMONARY HAEMORRHAGE [None]
  - HAEMORRHAGE [None]
